FAERS Safety Report 13970342 (Version 1)
Quarter: 2017Q3

REPORT INFORMATION
  Report Type: Spontaneous
  Country: US (occurrence: US)
  Receive Date: 20170914
  Receipt Date: 20170914
  Transmission Date: 20171128
  Serious: No
  Sender: FDA-Public Use
  Company Number: US-ASTELLAS-2017US014402

PATIENT
  Age: 77 Year
  Sex: Male

DRUGS (2)
  1. XTANDI [Suspect]
     Active Substance: ENZALUTAMIDE
     Indication: PROSTATE CANCER
     Dosage: UNK, UNKNOWN FREQ.
     Route: 048
  2. XTANDI [Suspect]
     Active Substance: ENZALUTAMIDE
     Route: 048
     Dates: start: 20170208, end: 20170411

REACTIONS (8)
  - Fatigue [Unknown]
  - Asthenia [Unknown]
  - Sinusitis [Unknown]
  - Dyspnoea [Unknown]
  - Pain in extremity [Unknown]
  - Rash [Unknown]
  - Pollakiuria [Unknown]
  - Back pain [Unknown]
